FAERS Safety Report 7729843-3 (Version None)
Quarter: 2011Q3

REPORT INFORMATION
  Report Type: 
  Country: None (occurrence: None)
  Receive Date: 20110906
  Receipt Date: 20110830
  Transmission Date: 20111222
  Serious: Yes (Other)
  Sender: FDA-Public Use
  Company Number: HR-ROCHE-799517

PATIENT
  Age: 86 Year
  Sex: Female

DRUGS (4)
  1. AMLOPIN [Concomitant]
  2. IBRUPROFEN [Concomitant]
  3. OXAZEPAM [Concomitant]
     Indication: ANXIETY DISORDER
  4. BONIVA [Suspect]
     Dosage: FORM: FILM COATED TABLETS
     Route: 048
     Dates: start: 20110720

REACTIONS (3)
  - CHILLS [None]
  - CONFUSIONAL STATE [None]
  - URINARY INCONTINENCE [None]
